FAERS Safety Report 6172491-X (Version None)
Quarter: 2009Q2

REPORT INFORMATION
  Report Type: 
  Country: None (occurrence: None)
  Receive Date: 20090427
  Receipt Date: 20090410
  Transmission Date: 20091009
  Serious: Yes (Hospitalization)
  Sender: FDA-Public Use
  Company Number: 8044851

PATIENT
  Age: 32 Year
  Sex: Male

DRUGS (4)
  1. PREDNISOLONE [Suspect]
     Dosage: 10 MG /D
  2. CELLCEPT [Concomitant]
  3. TACROLIMUS [Concomitant]
  4. .. [Concomitant]

REACTIONS (5)
  - DRY SKIN [None]
  - NAIL BED INFLAMMATION [None]
  - PAIN IN EXTREMITY [None]
  - RASH MACULO-PAPULAR [None]
  - TRANSPLANT REJECTION [None]
